FAERS Safety Report 5860295-4 (Version None)
Quarter: 2008Q3

REPORT INFORMATION
  Report Type: 
  Country: None (occurrence: None)
  Receive Date: 20080827
  Receipt Date: 20070822
  Transmission Date: 20090109
  Serious: No
  Sender: FDA-Public Use
  Company Number: US-ABBOTT-07P-163-0378519-00

PATIENT
  Sex: Female
  Weight: 68.1 kg

DRUGS (3)
  1. NIASPAN [Suspect]
     Indication: BLOOD TRIGLYCERIDES INCREASED
     Dosage: WHITE
     Route: 048
     Dates: start: 20040101, end: 20070501
  2. NIASPAN [Suspect]
     Dosage: COATED
     Route: 048
     Dates: start: 20070501
  3. LOVASTATIN [Concomitant]
     Indication: DRUG USE FOR UNKNOWN INDICATION
     Route: 048
     Dates: start: 20060101

REACTIONS (2)
  - BLOOD TRIGLYCERIDES INCREASED [None]
  - HOT FLUSH [None]
